FAERS Safety Report 4433410-7 (Version None)
Quarter: 2004Q3

REPORT INFORMATION
  Report Type: 
  Country: None (occurrence: None)
  Receive Date: 20040824
  Receipt Date: 20040812
  Transmission Date: 20050211
  Serious: Yes (Death, Hospitalization)
  Sender: FDA-Public Use
  Company Number: LBID00204002795

PATIENT
  Age: 76 Year
  Sex: Male

DRUGS (6)
  1. LITHIUM CARBONATE [Suspect]
     Indication: ILL-DEFINED DISORDER
     Dosage: UNK DAILY PO
     Route: 048
  2. CHLORPROMAZINE [Concomitant]
  3. PROCYCLIDINE HYDROCHLORIDE 2MG TAB [Concomitant]
  4. NITRAZEPAM [Concomitant]
  5. ZOPICLONE (ZOPICLONE) [Concomitant]
  6. FUROSEMIDE [Concomitant]

REACTIONS (23)
  - AGGRESSION [None]
  - BLOOD CREATININE INCREASED [None]
  - BLOOD OSMOLARITY INCREASED [None]
  - BLOOD POTASSIUM INCREASED [None]
  - C-REACTIVE PROTEIN INCREASED [None]
  - CACHEXIA [None]
  - CLUBBING [None]
  - DEHYDRATION [None]
  - DELIRIUM [None]
  - DEPRESSED LEVEL OF CONSCIOUSNESS [None]
  - GASTROINTESTINAL HAEMORRHAGE [None]
  - GLASGOW COMA SCALE ABNORMAL [None]
  - HYPERCALCAEMIA [None]
  - HYPONATRAEMIA [None]
  - HYPOTENSION [None]
  - LUNG CONSOLIDATION [None]
  - LUNG NEOPLASM MALIGNANT [None]
  - MALAISE [None]
  - NEPHROGENIC DIABETES INSIPIDUS [None]
  - PNEUMONIA [None]
  - POLYURIA [None]
  - PULMONARY MASS [None]
  - VOMITING [None]
